FAERS Safety Report 6045333-0 (Version None)
Quarter: 2009Q1

REPORT INFORMATION
  Report Type: 
  Country: None (occurrence: None)
  Receive Date: 20090121
  Receipt Date: 20090116
  Transmission Date: 20090719
  Serious: Yes (Life-Threatening)
  Sender: FDA-Public Use
  Company Number: PHHY2009ES01623

PATIENT
  Age: 45 Year
  Sex: Male

DRUGS (4)
  1. TRILEPTAL [Suspect]
     Indication: MENTAL DISORDER
     Dosage: 100 TABLETS
     Route: 048
  2. TRILEPTAL [Suspect]
     Indication: IMPULSIVE BEHAVIOUR
  3. MIRTAZAPINE [Suspect]
     Dosage: 30 TABLETS
  4. VENLAFAXINE (NGX) [Suspect]
     Dosage: MORE THAN 30 TABLETS
     Route: 048

REACTIONS (6)
  - COMA [None]
  - INTENTIONAL OVERDOSE [None]
  - LOSS OF CONSCIOUSNESS [None]
  - RESPIRATORY DEPRESSION [None]
  - SUICIDE ATTEMPT [None]
  - VITAL FUNCTIONS ABNORMAL [None]
